FAERS Safety Report 17546218 (Version 6)
Quarter: 2020Q3

REPORT INFORMATION
  Report Type: Not Available
  Country: US (occurrence: US)
  Receive Date: 20200316
  Receipt Date: 20200724
  Transmission Date: 20201102
  Serious: No
  Sender: FDA-Public Use
  Company Number: US-NEUROCRINE BIOSCIENCES INC.-2020NBI00763

PATIENT
  Age: 69 Year
  Sex: Female

DRUGS (4)
  1. INGREZZA [Suspect]
     Active Substance: VALBENAZINE
     Indication: TARDIVE DYSKINESIA
     Route: 048
     Dates: start: 20200227, end: 20200305
  2. CYMBALTA [Concomitant]
     Active Substance: DULOXETINE HYDROCHLORIDE
     Indication: DEPRESSION
     Route: 048
     Dates: start: 2016
  3. INGREZZA [Suspect]
     Active Substance: VALBENAZINE
     Route: 048
     Dates: start: 20200306
  4. LORAZEPAM. [Concomitant]
     Active Substance: LORAZEPAM
     Indication: ANXIETY
     Route: 048
     Dates: start: 2018

REACTIONS (12)
  - Hypersomnia [Unknown]
  - Tardive dyskinesia [Recovered/Resolved]
  - Headache [Recovered/Resolved]
  - Restlessness [Recovered/Resolved]
  - Road traffic accident [Recovered/Resolved]
  - Bone contusion [Unknown]
  - Feeling abnormal [Unknown]
  - Nightmare [Unknown]
  - Contusion [Unknown]
  - Psychomotor hyperactivity [Recovered/Resolved]
  - Muscle twitching [Unknown]
  - Head injury [Unknown]

NARRATIVE: CASE EVENT DATE: 2020
